FAERS Safety Report 11680967 (Version 2)
Quarter: 2015Q4

REPORT INFORMATION
  Report Type: Spontaneous
  Country: US (occurrence: US)
  Receive Date: 20151027
  Receipt Date: 20151110
  Transmission Date: 20160304
  Serious: No
  Sender: FDA-Public Use
  Company Number: US-ELI_LILLY_AND_COMPANY-US201004003673

PATIENT
  Sex: Female

DRUGS (2)
  1. FORTEO [Suspect]
     Active Substance: TERIPARATIDE
     Indication: OSTEOPOROSIS
     Dosage: 20 UG, QD
     Route: 065
  2. FORTEO [Suspect]
     Active Substance: TERIPARATIDE
     Dosage: 20 UG, QD

REACTIONS (7)
  - Vision blurred [Unknown]
  - Dizziness [Unknown]
  - Incorrect drug administration duration [Unknown]
  - Injection site pain [Unknown]
  - Contusion [Unknown]
  - Cough [Unknown]
  - Cataract [Recovering/Resolving]

NARRATIVE: CASE EVENT DATE: 2011
